FAERS Safety Report 8472481-8 (Version None)
Quarter: 2012Q2

REPORT INFORMATION
  Report Type: 
  Country: None (occurrence: None)
  Receive Date: 20120627
  Receipt Date: 20120124
  Transmission Date: 20120825
  Serious: No
  Sender: FDA-Public Use
  Company Number: US-AMGEN-USASP2011068189

PATIENT
  Age: 54 Year
  Sex: Female
  Weight: 46 kg

DRUGS (9)
  1. INTERFERON [Concomitant]
     Indication: HEPATITIS C
     Dosage: 160 MUG, QWK
     Route: 058
     Dates: start: 20110401
  2. PROCRIT [Suspect]
     Dosage: UNK UNK, Q2WK
     Route: 058
     Dates: start: 20111101
  3. OPANA [Concomitant]
     Indication: PAIN
     Dosage: 20 MG, TID
     Dates: start: 20080101
  4. HYDROCODONE BITARTRATE [Concomitant]
     Indication: PAIN
     Dosage: 300 MG, PRN
     Route: 048
     Dates: start: 20060101
  5. BACLOFEN [Concomitant]
     Indication: MUSCLE RELAXANT THERAPY
     Dosage: 10 MG, UNK
     Route: 048
     Dates: start: 20080101
  6. PROCRIT [Suspect]
     Indication: ANAEMIA
     Dosage: UNK UNK, QWK
     Route: 058
     Dates: start: 20110601, end: 20111101
  7. HORMONES [Concomitant]
     Dosage: UNK
  8. RIBAVIRIN [Concomitant]
     Indication: HEPATITIS C
     Dosage: 200 MG, QD
     Dates: start: 20110401
  9. PROMETHAZINE [Concomitant]
     Indication: NAUSEA
     Dosage: 25 MG, PRN
     Route: 048
     Dates: start: 20110401

REACTIONS (2)
  - LEUKOPENIA [None]
  - INJECTION SITE PAIN [None]
